FAERS Safety Report 16609957 (Version 1)
Quarter: 2019Q3

REPORT INFORMATION
  Report Type: Spontaneous
  Country: US (occurrence: US)
  Receive Date: 20190607
  Receipt Date: 20190607
  Transmission Date: 20191004
  Serious: Yes (Hospitalization, Disabling)
  Sender: FDA-Public Use
  Company Number: None

PATIENT
  Age: 53 Year
  Sex: Female
  Weight: 61.23 kg

DRUGS (12)
  1. DONEPEZOL [Concomitant]
  2. CETIRIZINE [Concomitant]
     Active Substance: CETIRIZINE HYDROCHLORIDE
  3. CHOLECALCIFEROL [Concomitant]
     Active Substance: CHOLECALCIFEROL
  4. BICTEGRAVIR [Concomitant]
     Active Substance: BICTEGRAVIR
  5. OMEPRAZOLE. [Concomitant]
     Active Substance: OMEPRAZOLE
  6. PREDNISONE 20MG TABLET [Suspect]
     Active Substance: PREDNISONE
     Indication: RASH
     Dosage: ?          QUANTITY:20 MG MILLIGRAM(S);?
     Route: 048
     Dates: start: 20151028
  7. DULOXETINE. [Concomitant]
     Active Substance: DULOXETINE
  8. ERGOCALCIFEROL. [Concomitant]
     Active Substance: ERGOCALCIFEROL
  9. POLYETHYLENE [Concomitant]
     Active Substance: HIGH DENSITY POLYETHYLENE
  10. FLUTICASONE. [Concomitant]
     Active Substance: FLUTICASONE
  11. LIDOCAINE. [Concomitant]
     Active Substance: LIDOCAINE
  12. PREDNISONE. [Suspect]
     Active Substance: PREDNISONE
     Indication: LICHEN PLANUS
     Dosage: ?          QUANTITY:10 MG MILLIGRAM(S);?
     Route: 048
     Dates: end: 20151028

REACTIONS (8)
  - Swelling [None]
  - Swelling face [None]
  - Peripheral swelling [None]
  - Intraocular pressure test abnormal [None]
  - Gait disturbance [None]
  - Renal disorder [None]
  - Back pain [None]
  - Fluid retention [None]

NARRATIVE: CASE EVENT DATE: 20151028
